FAERS Safety Report 7643833-0 (Version None)
Quarter: 2011Q3

REPORT INFORMATION
  Report Type: 
  Country: None (occurrence: None)
  Receive Date: 20110729
  Receipt Date: 20100608
  Transmission Date: 20111222
  Serious: No
  Sender: FDA-Public Use
  Company Number: US-GLAXOSMITHKLINE-A0863782A

PATIENT
  Age: 50 Year
  Sex: Male

DRUGS (2)
  1. IMITREX [Suspect]
     Indication: MIGRAINE
     Route: 048
     Dates: start: 20010101, end: 20010101
  2. NO CONCURRENT MEDICATION [Concomitant]

REACTIONS (3)
  - VOMITING [None]
  - DRUG INEFFECTIVE [None]
  - NAUSEA [None]
